FAERS Safety Report 7301642-6 (Version None)
Quarter: 2011Q1

REPORT INFORMATION
  Report Type: 
  Country: None (occurrence: None)
  Receive Date: 20110218
  Receipt Date: 20110204
  Transmission Date: 20110831
  Serious: Yes (Life-Threatening, Hospitalization)
  Sender: FDA-Public Use
  Company Number: GB-MYLANLABS-2011S1002530

PATIENT
  Age: 65 Year
  Sex: Male

DRUGS (8)
  1. FLOXACILLIN SODIUM [Concomitant]
     Indication: SEPTIC ARTHRITIS STAPHYLOCOCCAL
     Route: 042
  2. DOXAZOSIN [Concomitant]
     Indication: HYPERTENSION
  3. SIMVASTATIN [Suspect]
     Indication: HYPERCHOLESTEROLAEMIA
     Route: 048
     Dates: start: 20010101
  4. BENDROFLUAZIDE [Concomitant]
     Indication: HYPERTENSION
  5. ATENOLOL [Concomitant]
     Indication: MYOCARDIAL ISCHAEMIA
  6. RAMIPRIL [Concomitant]
     Indication: MYOCARDIAL ISCHAEMIA
  7. AMLODIPINE [Concomitant]
     Indication: HYPERTENSION
  8. FUSIDIC ACID [Interacting]
     Indication: SEPTIC ARTHRITIS STAPHYLOCOCCAL
     Route: 048

REACTIONS (5)
  - HYPOXIA [None]
  - RENAL FAILURE ACUTE [None]
  - DRUG INTERACTION [None]
  - HYPOTENSION [None]
  - RHABDOMYOLYSIS [None]
